FAERS Safety Report 8614546-3 (Version None)
Quarter: 2012Q3

REPORT INFORMATION
  Report Type: 
  Country: None (occurrence: None)
  Receive Date: 20120823
  Receipt Date: 20120821
  Transmission Date: 20120928
  Serious: Yes (Death, Hospitalization, Other)
  Sender: FDA-Public Use
  Company Number: PHEH2012US000508

PATIENT
  Sex: Female

DRUGS (7)
  1. ZOMETA [Suspect]
  2. OXYCONTIN [Concomitant]
  3. MOTRIN [Concomitant]
  4. TAXOTERE [Concomitant]
  5. HERCEPTIN [Concomitant]
  6. AVASTIN [Concomitant]
  7. LORTAB [Concomitant]

REACTIONS (54)
  - HEADACHE [None]
  - NECROSIS [None]
  - HYPERLIPIDAEMIA [None]
  - DIZZINESS [None]
  - BREAST MASS [None]
  - SWELLING FACE [None]
  - METASTASES TO BONE [None]
  - HYDROCEPHALUS [None]
  - CUSHINGOID [None]
  - METASTASES TO CENTRAL NERVOUS SYSTEM [None]
  - INTERVERTEBRAL DISC DEGENERATION [None]
  - UTERINE LEIOMYOMA [None]
  - MITRAL VALVE INCOMPETENCE [None]
  - AORTIC VALVE INCOMPETENCE [None]
  - BRAIN NEOPLASM [None]
  - DRY EYE [None]
  - ABDOMINAL PAIN [None]
  - NAUSEA [None]
  - METASTASES TO SPINE [None]
  - PLEURAL EFFUSION [None]
  - HEPATIC CYST [None]
  - NEUROPATHY PERIPHERAL [None]
  - OSTEOSCLEROSIS [None]
  - EMPHYSEMA [None]
  - ATROPHY [None]
  - THROMBOCYTOPENIA [None]
  - OSTEORADIONECROSIS [None]
  - HYPERTENSION [None]
  - METASTASES TO ABDOMINAL CAVITY [None]
  - LYMPHADENOPATHY [None]
  - HAEMATOMA [None]
  - COMPRESSION FRACTURE [None]
  - SEROMA [None]
  - CONSTIPATION [None]
  - NECK PAIN [None]
  - VOMITING [None]
  - METASTASES TO LIVER [None]
  - ATELECTASIS [None]
  - NEOPLASM MALIGNANT [None]
  - BREAST CANCER [None]
  - ATAXIA [None]
  - MUSCLE STRAIN [None]
  - APHASIA [None]
  - BRAIN MASS [None]
  - BONE NEOPLASM MALIGNANT [None]
  - BACK PAIN [None]
  - SMALL INTESTINAL OBSTRUCTION [None]
  - OSTEONECROSIS OF JAW [None]
  - SCOLIOSIS [None]
  - INTESTINAL OBSTRUCTION [None]
  - OEDEMA [None]
  - PERIRECTAL ABSCESS [None]
  - PNEUMOCEPHALUS [None]
  - HOT FLUSH [None]
